FAERS Safety Report 8769234 (Version 1)
Quarter: 2012Q4

REPORT INFORMATION
  Report Type: 
  Country: US (occurrence: US)
  Receive Date: 20120904
  Receipt Date: 20120904
  Transmission Date: 20130627
  Serious: Yes (Hospitalization)
  Sender: FDA-Public Use
  Company Number: US-ASTRAZENECA-2012SE64695

PATIENT
  Age: 50 Year
  Sex: Female
  Weight: 40.8 kg

DRUGS (5)
  1. SEROQUEL [Suspect]
     Indication: SLEEP DISORDER
     Route: 048
     Dates: start: 2010
  2. WELLBUTRIN [Concomitant]
     Indication: DEPRESSION
     Route: 048
     Dates: start: 2010
  3. HYDROXYZINE [Concomitant]
     Indication: ANXIETY
     Route: 048
     Dates: start: 2002
  4. EFFEXOR [Concomitant]
     Indication: DEPRESSION
     Route: 048
     Dates: start: 2010
  5. LEXAPRO [Concomitant]
     Route: 048
     Dates: start: 2010

REACTIONS (4)
  - Depression [Unknown]
  - Bronchitis [Unknown]
  - Cough [Unknown]
  - Vomiting [Unknown]
